FAERS Safety Report 5895067-8 (Version None)
Quarter: 2008Q3

REPORT INFORMATION
  Report Type: 
  Country: None (occurrence: None)
  Receive Date: 20080924
  Receipt Date: 20080912
  Transmission Date: 20090109
  Serious: Yes (Hospitalization, Other)
  Sender: FDA-Public Use
  Company Number: US-BAYER-US-2006-023815

PATIENT
  Age: 50 Year
  Sex: Female
  Weight: 180 kg

DRUGS (8)
  1. ULTRAVIST 370 [Suspect]
     Indication: ARTERIOGRAM CORONARY
     Route: 013
     Dates: start: 20050531, end: 20050531
  2. NITROGLYCERIN [Concomitant]
  3. ATENOLOL [Concomitant]
  4. ENTERIC ASPIRIN [Concomitant]
     Dosage: UNIT DOSE: 325 MG
  5. LISINOPRIL [Concomitant]
  6. PREMARIN [Concomitant]
     Dosage: UNIT DOSE: 1.25 MG
     Dates: end: 20050603
  7. PEPCID [Concomitant]
  8. IBUPROFEN [Concomitant]

REACTIONS (35)
  - ANHEDONIA [None]
  - ANXIETY [None]
  - APHASIA [None]
  - ATELECTASIS [None]
  - BALANCE DISORDER [None]
  - BODY TEMPERATURE INCREASED [None]
  - BRAIN INJURY [None]
  - CEREBROVASCULAR ACCIDENT [None]
  - COGNITIVE DISORDER [None]
  - CONFUSIONAL STATE [None]
  - COORDINATION ABNORMAL [None]
  - EMOTIONAL DISTRESS [None]
  - ENCEPHALOPATHY [None]
  - FACIAL PALSY [None]
  - HALLUCINATION, VISUAL [None]
  - HEADACHE [None]
  - HEMIPARESIS [None]
  - HYPERAMMONAEMIA [None]
  - HYPOAESTHESIA [None]
  - INJURY [None]
  - MEMORY IMPAIRMENT [None]
  - MOTOR DYSFUNCTION [None]
  - NAUSEA [None]
  - NERVOUS SYSTEM DISORDER [None]
  - PAIN [None]
  - PARAESTHESIA [None]
  - PARTIAL SEIZURES [None]
  - RASH MACULO-PAPULAR [None]
  - RED BLOOD CELL SEDIMENTATION RATE INCREASED [None]
  - STATUS EPILEPTICUS [None]
  - TENDON DISORDER [None]
  - URINARY INCONTINENCE [None]
  - VERTIGO POSITIONAL [None]
  - VISION BLURRED [None]
  - VOMITING [None]
